FAERS Safety Report 11114185 (Version 3)
Quarter: 2015Q3

REPORT INFORMATION
  Report Type: Spontaneous
  Country: IE (occurrence: IE)
  Receive Date: 20150514
  Receipt Date: 20150709
  Transmission Date: 20151125
  Serious: Yes (Hospitalization, Other)
  Sender: FDA-Public Use
  Company Number: PHFR2015IE003723

PATIENT
  Age: 41 Year
  Sex: Male

DRUGS (2)
  1. CLOZARIL [Suspect]
     Active Substance: CLOZAPINE
     Dosage: UNK
     Route: 048
     Dates: start: 20150703
  2. CLOZARIL [Suspect]
     Active Substance: CLOZAPINE
     Indication: SCHIZOPHRENIA
     Dosage: UNK
     Route: 048
     Dates: start: 20110707, end: 20150511

REACTIONS (5)
  - Fall [Unknown]
  - Seizure [Recovering/Resolving]
  - Head injury [Unknown]
  - Hyperhidrosis [Unknown]
  - Tachycardia [Unknown]

NARRATIVE: CASE EVENT DATE: 20150511
